FAERS Safety Report 8701458 (Version 3)
Quarter: 2012Q4

REPORT INFORMATION
  Report Type: 
  Country: BE (occurrence: BE)
  Receive Date: 20120802
  Receipt Date: 20121024
  Transmission Date: 20130627
  Serious: Yes (Life-Threatening, Hospitalization)
  Sender: FDA-Public Use
  Company Number: BE-GILEAD-2012-0058942

PATIENT
  Age: 53 Year
  Sex: Male

DRUGS (8)
  1. ATRIPLA [Suspect]
     Indication: HIV INFECTION
     Dosage: 1 DF, QD
     Route: 048
  2. VANCOMYCINE [Suspect]
     Indication: FEBRILE NEUTROPENIA
     Dosage: 500 mg, QD
     Route: 042
     Dates: start: 20120408, end: 20120424
  3. ACICLOVIR [Interacting]
     Indication: PROPHYLAXIS
     Dosage: 400 mg, TID
     Route: 048
  4. MERONEM [Concomitant]
     Indication: FEBRILE NEUTROPENIA
     Dosage: 1 g, BID
     Dates: start: 20120408, end: 20120530
  5. DIFLUCAN [Concomitant]
     Indication: PROPHYLAXIS
     Dosage: 400 mg, QD
     Route: 048
  6. TEGRETOL [Concomitant]
     Indication: EPILEPSY
     Dosage: 600 mg, BID
     Route: 048
     Dates: end: 20120410
  7. FRAXIPARINE                        /01437701/ [Concomitant]
     Indication: THROMBOSIS PROPHYLAXIS
     Dosage: 0.3 ml, QD
     Route: 058
  8. CYMBALTA [Concomitant]
     Indication: DEPRESSION
     Dosage: 30 mg, QD
     Route: 048

REACTIONS (10)
  - Rhabdomyolysis [Recovering/Resolving]
  - Sepsis [Recovering/Resolving]
  - Hyperphosphataemia [Recovering/Resolving]
  - Hypocalcaemia [Recovering/Resolving]
  - Hyperuricaemia [Recovering/Resolving]
  - Cystitis klebsiella [Recovering/Resolving]
  - Drug interaction [Recovered/Resolved]
  - Renal failure acute [Recovering/Resolving]
  - Somnolence [Recovering/Resolving]
  - Confusional state [Recovering/Resolving]
